FAERS Safety Report 21912464 (Version 1)
Quarter: 2023Q1

REPORT INFORMATION
  Report Type: Spontaneous
  Country: US (occurrence: US)
  Receive Date: 20230125
  Receipt Date: 20230125
  Transmission Date: 20230418
  Serious: No
  Sender: FDA-Public Use
  Company Number: US-ALLERGAN-2228235US

PATIENT
  Age: 58 Year
  Sex: Female

DRUGS (1)
  1. BOTOX [Suspect]
     Active Substance: ONABOTULINUMTOXINA
     Indication: Product used for unknown indication
     Dosage: UNK, SINGLE
     Route: 058
     Dates: start: 202204, end: 202204

REACTIONS (2)
  - Palpitations [Recovered/Resolved with Sequelae]
  - Incorrect route of product administration [Unknown]

NARRATIVE: CASE EVENT DATE: 20220401
